FAERS Safety Report 9013547 (Version 1)
Quarter: 2013Q1

REPORT INFORMATION
  Report Type: Spontaneous
  Country: US (occurrence: None)
  Receive Date: 20130107
  Receipt Date: 20130107
  Transmission Date: 20140127
  Serious: No
  Sender: FDA-Public Use
  Company Number: None

PATIENT
  Sex: Male

DRUGS (1)
  1. STIVARGA [Suspect]
     Indication: COLON CANCER
     Dosage: 4 TABS QD PO
     Route: 048
     Dates: start: 20121027, end: 20130102

REACTIONS (2)
  - Drug ineffective [None]
  - Disease progression [None]
